FAERS Safety Report 8245595-5 (Version None)
Quarter: 2012Q1

REPORT INFORMATION
  Report Type: 
  Country: None (occurrence: None)
  Receive Date: 20120330
  Receipt Date: 20120320
  Transmission Date: 20120608
  Serious: Yes (Hospitalization)
  Sender: FDA-Public Use
  Company Number: DE-BRISTOL-MYERS SQUIBB COMPANY-16267163

PATIENT
  Age: 68 Year
  Sex: Female
  Weight: 50 kg

DRUGS (13)
  1. ONDANSETRON [Concomitant]
     Indication: PREMEDICATION
     Dosage: 17AUG11-31AUG11, 14DEC11
     Dates: start: 20110817
  2. ERBITUX [Suspect]
     Indication: COLORECTAL CANCER METASTATIC
     Dosage: 400MG/M2 17AUG11-; 250MG/M2 24AUG-07SEP11(14DAYS),09-23NOV11:250MG(14DAYS).DISCONT 28NOV12(103DYS).
     Route: 042
     Dates: start: 20110817, end: 20111123
  3. LEUCOVORIN CALCIUM [Concomitant]
     Indication: COLORECTAL CANCER METASTATIC
     Route: 042
     Dates: start: 20111201
  4. FOLINATE [Concomitant]
     Indication: COLORECTAL CANCER METASTATIC
     Dosage: TOT:590MG,17AG11,5OT11-UK,2NV11-UK,16NV-UK,1DEC11-UK. TOT:560MG 14DEC11
     Route: 042
     Dates: start: 20110817
  5. GRANISETRON HYDROCHLORIDE [Concomitant]
     Indication: PREMEDICATION
     Dosage: 2 MG SHORT INFUSION
     Route: 042
     Dates: start: 20111201
  6. DOXEPIN HCL [Concomitant]
     Indication: SEDATION
     Route: 048
     Dates: start: 20110711, end: 20111210
  7. FLUOROURACIL [Concomitant]
     Indication: COLORECTAL CANCER METASTATIC
     Dosage: TOT:590MGBOLUS,2300MG/M2(TOT:3400MG)ON 17-31AUG,5OCT11-UNK,2NV-UNK,16NV-UNK,1DEC-UK,14DEC11(560MG)
     Route: 042
     Dates: start: 20110817
  8. BISOPROLOL FUMARATE [Concomitant]
     Indication: HYPERTENSION
     Route: 048
     Dates: start: 20110901
  9. FENISTIL [Concomitant]
     Indication: PREMEDICATION
     Dosage: 1DF+1 AMP. 17AUG11-31AUG11, 14DEC11
     Dates: start: 20110817
  10. PANTOPRAZOLE [Concomitant]
     Route: 048
  11. OXALIPLATIN [Concomitant]
     Indication: COLORECTAL CANCER METASTATIC
     Dosage: TOT:125MG:17-31AUG11(14DY),16NV11-UNK,1DEC11-UNK,110MG(14-DEC11-UNK)
     Route: 042
     Dates: start: 20110817
  12. IBUPROFEN [Concomitant]
     Route: 048
  13. DEXAMETHASONE [Concomitant]
     Indication: PREMEDICATION
     Dosage: 17AUG11-31AUG11, 14DEC11
     Dates: start: 20110817

REACTIONS (4)
  - ESCHERICHIA URINARY TRACT INFECTION [None]
  - VOMITING [None]
  - DIARRHOEA [None]
  - VERTIGO [None]
